FAERS Safety Report 8970281 (Version 1)
Quarter: 2012Q4

REPORT INFORMATION
  Report Type: 
  Country: US (occurrence: US)
  Receive Date: 20121218
  Receipt Date: 20121218
  Transmission Date: 20130627
  Serious: No
  Sender: FDA-Public Use
  Company Number: US-BRISTOL-MYERS SQUIBB COMPANY-17035692

PATIENT
  Age: 45 Year
  Sex: Male

DRUGS (3)
  1. ABILIFY [Suspect]
     Indication: BIPOLAR DISORDER
     Dosage: dose increased on 18Sep12 to 20mg
     Dates: start: 20120411
  2. VISTARIL [Concomitant]
     Indication: ANXIETY
     Dosage: as needed
  3. WELLBUTRIN XL [Concomitant]

REACTIONS (1)
  - Drug ineffective [Unknown]
